FAERS Safety Report 7384456-0 (Version None)
Quarter: 2011Q1

REPORT INFORMATION
  Report Type: 
  Country: None (occurrence: None)
  Receive Date: 20110330
  Receipt Date: 20110325
  Transmission Date: 20110831
  Serious: Yes (Other)
  Sender: FDA-Public Use
  Company Number: GB-PFIZER INC-2011067863

PATIENT
  Age: 75 Year
  Sex: Female
  Weight: 35 kg

DRUGS (8)
  1. ENOXAPARIN [Concomitant]
     Indication: THROMBOSIS PROPHYLAXIS
     Dosage: 20 MG, 1X/DAY
     Route: 058
     Dates: start: 20110225
  2. DOXYCYCLINE HYCLATE [Suspect]
     Indication: LOWER RESPIRATORY TRACT INFECTION
     Dosage: 100 MG, 2X/DAY
     Route: 048
     Dates: start: 20110227, end: 20110303
  3. SERETIDE [Concomitant]
     Indication: EMPHYSEMA
     Dosage: 2 DF, 2X/DAY
     Route: 055
  4. CYCLIZINE [Concomitant]
     Indication: NAUSEA
     Dosage: 50 MG, 3X/DAY
     Route: 048
     Dates: start: 20110301, end: 20110303
  5. LACTULOSE [Concomitant]
     Indication: CONSTIPATION
     Dosage: 10 ML, 2X/DAY
     Route: 048
     Dates: start: 20110227
  6. PARACETAMOL [Concomitant]
     Indication: PAIN
     Dosage: 1 G, 1X/DAY
     Route: 048
     Dates: start: 20110228, end: 20110228
  7. ATROVENT [Concomitant]
     Indication: EMPHYSEMA
     Dosage: 0.5 MG, EVERY HOUR
     Route: 055
     Dates: start: 20110120
  8. SALBUTAMOL [Concomitant]
     Dosage: 2.5 MG, 1X/DAY
     Route: 055
     Dates: start: 20110226, end: 20110303

REACTIONS (1)
  - LIVER FUNCTION TEST ABNORMAL [None]
